FAERS Safety Report 20302557 (Version 1)
Quarter: 2022Q1

REPORT INFORMATION
  Report Type: Spontaneous
  Country: US (occurrence: US)
  Receive Date: 20220106
  Receipt Date: 20220106
  Transmission Date: 20220423
  Serious: No
  Sender: FDA-Public Use
  Company Number: US-TEVA-2021-US-1982342

PATIENT
  Age: 61 Year
  Sex: Male

DRUGS (1)
  1. AUSTEDO [Suspect]
     Active Substance: DEUTETRABENAZINE
     Indication: Tardive dyskinesia
     Dosage: 18 MILLIGRAM DAILY;
     Route: 065

REACTIONS (9)
  - Tremor [Unknown]
  - Muscle twitching [Unknown]
  - Agitation [Unknown]
  - Anger [Unknown]
  - Drooling [Unknown]
  - Salivary hypersecretion [Unknown]
  - Dry mouth [Unknown]
  - Nervousness [Unknown]
  - Cough [Unknown]

NARRATIVE: CASE EVENT DATE: 20210101
